FAERS Safety Report 9476468 (Version 3)
Quarter: 2014Q1

REPORT INFORMATION
  Report Type: Spontaneous
  Country: US (occurrence: US)
  Receive Date: 20130826
  Receipt Date: 20140305
  Transmission Date: 20141002
  Serious: Yes (Hospitalization, Other)
  Sender: FDA-Public Use
  Company Number: US-BAYER-2013-099879

PATIENT
  Age: 44 Year
  Sex: Male

DRUGS (9)
  1. AVELOX I.V. [Suspect]
     Dosage: 400 MG, UNK
     Dates: start: 20110907
  2. MOXIFLOXACIN [Suspect]
     Dosage: UNK
     Route: 031
     Dates: start: 201109
  3. ROCEPHIN [Suspect]
     Dosage: UNK
     Dates: start: 20110908
  4. VANCOMYCIN [Suspect]
     Dosage: UNK
     Dates: start: 20110908
  5. BENAZEPRIL [Concomitant]
  6. TYLENOL [PARACETAMOL] [Concomitant]
     Dosage: UNK
     Dates: start: 20110908
  7. TYLENOL [PARACETAMOL] [Concomitant]
     Dosage: UNK
     Dates: start: 20110908
  8. MORPHINE [Concomitant]
     Dosage: UNK
     Dates: start: 20110908
  9. ALKA-SELTZER ORIGINAL [Concomitant]

REACTIONS (48)
  - Stevens-Johnson syndrome [None]
  - Toxic epidermal necrolysis [None]
  - Blister [None]
  - Skin exfoliation [None]
  - Blindness [None]
  - Disability [None]
  - Scar [None]
  - Tracheobronchitis [None]
  - Symblepharon [None]
  - Corneal scar [None]
  - Depressive symptom [None]
  - Corneal perforation [None]
  - Rash [None]
  - Mucocutaneous ulceration [None]
  - Skin lesion [None]
  - Conjunctivitis [None]
  - Tongue coated [None]
  - Petechiae [None]
  - Skin necrosis [None]
  - Dermatitis bullous [None]
  - Rash [None]
  - Blister [None]
  - Hepatomegaly [None]
  - Pain of skin [None]
  - Lip swelling [None]
  - Lip ulceration [None]
  - Lymphadenopathy [None]
  - Neck pain [None]
  - Pulmonary fibrosis [None]
  - Eye disorder [None]
  - Scar [None]
  - Pulmonary fibrosis [None]
  - Injury [None]
  - Emotional distress [None]
  - Psychological trauma [None]
  - Deformity [None]
  - Weight decreased [None]
  - Aphasia [None]
  - Aphagia [None]
  - Penis injury [None]
  - Genital injury [None]
  - Skin discolouration [None]
  - Alopecia [None]
  - Skin depigmentation [None]
  - Thermal burn [None]
  - Anxiety [None]
  - Anhedonia [None]
  - Blindness unilateral [None]
